FAERS Safety Report 4482072-1 (Version None)
Quarter: 2004Q4

REPORT INFORMATION
  Report Type: 
  Country: None (occurrence: None)
  Receive Date: 20041020
  Receipt Date: 20040930
  Transmission Date: 20050328
  Serious: Yes (Hospitalization)
  Sender: FDA-Public Use
  Company Number: FR_041004910

PATIENT
  Age: 63 Year
  Sex: Female

DRUGS (5)
  1. GEMZAR [Suspect]
     Indication: BILE DUCT CANCER
     Dosage: 1200 MG OTHER
     Route: 042
     Dates: start: 20040817
  2. ONDANSETRON HYDROCHLORIDE [Concomitant]
  3. ACTISKENAN         (MORPHINE SULFATE) [Concomitant]
  4. PRIMPERAN ELIXIR [Concomitant]
  5. INIPOMP  (PANTOPRAZOLE) [Concomitant]

REACTIONS (6)
  - BONE MARROW DEPRESSION [None]
  - ECZEMA [None]
  - EPIDERMAL NECROSIS [None]
  - LYMPHOHISTIOCYTOSIS [None]
  - RASH PRURITIC [None]
  - VASCULITIS [None]
